FAERS Safety Report 5584993-5 (Version None)
Quarter: 2008Q1

REPORT INFORMATION
  Report Type: 
  Country: None (occurrence: None)
  Receive Date: 20080107
  Receipt Date: 20080107
  Transmission Date: 20080703
  Serious: No
  Sender: FDA-Public Use
  Company Number: None

PATIENT
  Sex: Female

DRUGS (1)
  1. FIORICET [Suspect]
     Indication: MIGRAINE
     Dosage: ONE   4-6 HRS

REACTIONS (1)
  - ABDOMINAL PAIN [None]
